FAERS Safety Report 9543600 (Version 1)
Quarter: 2013Q3

REPORT INFORMATION
  Report Type: Spontaneous
  Country: US (occurrence: US)
  Receive Date: 20130923
  Receipt Date: 20130923
  Transmission Date: 20140515
  Serious: Yes (Other)
  Sender: FDA-Public Use
  Company Number: CHPA2013US014364

PATIENT
  Age: 71 Year
  Sex: Female

DRUGS (2)
  1. PRIVATE LABEL [Suspect]
     Indication: SMOKING CESSATION THERAPY
     Dosage: 21 MG, QD
     Route: 062
     Dates: start: 2012, end: 2012
  2. NICODERM [Concomitant]
     Dosage: 14 MG, UNK
     Dates: start: 2012, end: 2012

REACTIONS (2)
  - Arterial occlusive disease [Not Recovered/Not Resolved]
  - Thrombosis [Unknown]
